FAERS Safety Report 7340485-4 (Version None)
Quarter: 2011Q1

REPORT INFORMATION
  Report Type: 
  Country: None (occurrence: None)
  Receive Date: 20110309
  Receipt Date: 20110301
  Transmission Date: 20110831
  Serious: Yes (Other)
  Sender: FDA-Public Use
  Company Number: US-JNJFOC-20110301650

PATIENT
  Age: 28 Year
  Sex: Female
  Weight: 104.33 kg

DRUGS (1)
  1. EXTRA STRENGTH TYLENOL PM [Suspect]
     Indication: INSOMNIA
     Dosage: 2 CAPLETS EACH NIGHT FOR AT LEAST THE LAST 5 MONTHS
     Route: 048

REACTIONS (1)
  - INTENTIONAL DRUG MISUSE [None]
